FAERS Safety Report 6481328-0 (Version None)
Quarter: 2009Q4

REPORT INFORMATION
  Report Type: 
  Country: None (occurrence: None)
  Receive Date: 20091208
  Receipt Date: 20091201
  Transmission Date: 20100525
  Serious: Yes (Life-Threatening, Disabling)
  Sender: FDA-Public Use
  Company Number: B0524532A

PATIENT
  Age: 29 Year
  Sex: Female
  Weight: 59 kg

DRUGS (2)
  1. RANITIDINE [Suspect]
     Indication: ANTACID THERAPY
     Route: 042
     Dates: start: 20080530, end: 20080530
  2. PARACETAMOL [Concomitant]
     Route: 048
     Dates: start: 20080529, end: 20080529

REACTIONS (3)
  - DYSPNOEA [None]
  - HYPOTENSION [None]
  - TACHYCARDIA [None]
